FAERS Safety Report 24730415 (Version 1)
Quarter: 2024Q4

REPORT INFORMATION
  Report Type: Spontaneous
  Country: CA (occurrence: CA)
  Receive Date: 20241213
  Receipt Date: 20241213
  Transmission Date: 20250114
  Serious: Yes (Death)
  Sender: JOHNSON AND JOHNSON
  Company Number: CA-JNJFOC-20241236248

PATIENT
  Age: 64 Year
  Sex: Female

DRUGS (15)
  1. XARELTO [Suspect]
     Active Substance: RIVAROXABAN
     Indication: Product used for unknown indication
     Route: 048
  2. UPTRAVI [Concomitant]
     Active Substance: SELEXIPAG
     Indication: Pulmonary arterial hypertension
     Dosage: 1200 ?G, BID
     Route: 065
     Dates: start: 20171023, end: 20241130
  3. OPSUMIT [Concomitant]
     Active Substance: MACITENTAN
     Indication: Pulmonary arterial hypertension
     Dates: start: 20231016, end: 20241130
  4. ADCIRCA [Concomitant]
     Active Substance: TADALAFIL
  5. HYDROMORPHONE [Concomitant]
     Active Substance: HYDROMORPHONE
  6. SERTRALINE [Concomitant]
     Active Substance: SERTRALINE HYDROCHLORIDE
  7. ALBUTEROL [Concomitant]
     Active Substance: ALBUTEROL
  8. KCL [Concomitant]
     Active Substance: POTASSIUM CHLORIDE
  9. PREGABALIN [Concomitant]
     Active Substance: PREGABALIN
  10. METFORMIN [Concomitant]
     Active Substance: METFORMIN HYDROCHLORIDE
  11. LAXX [PHOSPHORIC ACID SODIUM;SODIUM PHOSPHATE DIBASIC] [Concomitant]
  12. FLOVENT [Concomitant]
     Active Substance: FLUTICASONE PROPIONATE
  13. CYMBALTA [Concomitant]
     Active Substance: DULOXETINE HYDROCHLORIDE
  14. ROSUVASTATIN [Concomitant]
     Active Substance: ROSUVASTATIN
  15. ALBUTEROL SULFATE [Concomitant]
     Active Substance: ALBUTEROL SULFATE

REACTIONS (1)
  - Death [Fatal]

NARRATIVE: CASE EVENT DATE: 20241130
